FAERS Safety Report 7744128-7 (Version None)
Quarter: 2011Q3

REPORT INFORMATION
  Report Type: 
  Country: None (occurrence: None)
  Receive Date: 20110912
  Receipt Date: 20110902
  Transmission Date: 20111222
  Serious: Yes (Hospitalization)
  Sender: FDA-Public Use
  Company Number: FR-JNJFOC-20110902068

PATIENT
  Sex: Female

DRUGS (7)
  1. KETOPROFEN [Concomitant]
     Indication: ILL-DEFINED DISORDER
     Dates: start: 20110511
  2. ACETAMINOPHEN [Concomitant]
     Indication: ILL-DEFINED DISORDER
     Dates: start: 20110511
  3. XARELTO [Suspect]
     Indication: THROMBOSIS PROPHYLAXIS
     Route: 048
     Dates: start: 20110511, end: 20110512
  4. SIDROS [Concomitant]
     Indication: ILL-DEFINED DISORDER
  5. OMEPRAZOLE [Concomitant]
     Indication: GASTROOESOPHAGEAL REFLUX DISEASE
  6. CEFAZOLIN [Suspect]
     Indication: ILL-DEFINED DISORDER
     Route: 042
     Dates: start: 20110511, end: 20110512
  7. CRESTOR [Concomitant]
     Indication: DYSLIPIDAEMIA

REACTIONS (1)
  - DEEP VEIN THROMBOSIS [None]
